FAERS Safety Report 5341436-4 (Version None)
Quarter: 2007Q2

REPORT INFORMATION
  Report Type: 
  Country: None (occurrence: None)
  Receive Date: 20070601
  Receipt Date: 20070521
  Transmission Date: 20071010
  Serious: Yes (Other)
  Sender: FDA-Public Use
  Company Number: US-JNJFOC-20070402487

PATIENT
  Sex: Male
  Weight: 113.4 kg

DRUGS (7)
  1. REMICADE [Suspect]
     Indication: CROHN'S DISEASE
     Dosage: EVENTS OCCURRED AT A RATE OF 80 CC/HR.
     Route: 042
  2. LEXAPRO [Concomitant]
  3. NEXIUM [Concomitant]
  4. ALTACE [Concomitant]
  5. FENTORA [Concomitant]
     Indication: PAIN
     Dosage: 1 EVERY 2-4 HOURS AS NECESSARY.
  6. OPANA ER [Concomitant]
  7. CONSTULOSE [Concomitant]

REACTIONS (4)
  - CHEST DISCOMFORT [None]
  - DYSPHONIA [None]
  - PYREXIA [None]
  - VISION BLURRED [None]
